FAERS Safety Report 10926132 (Version 1)
Quarter: 2015Q1

REPORT INFORMATION
  Report Type: Report from Study
  Country: US (occurrence: US)
  Receive Date: 20150318
  Receipt Date: 20150318
  Transmission Date: 20150721
  Serious: Yes (Other)
  Sender: FDA-Public Use
  Company Number: US-SA-2014SA139132

PATIENT
  Age: 41 Year
  Sex: Female

DRUGS (1)
  1. AUBAGIO [Suspect]
     Active Substance: TERIFLUNOMIDE
     Indication: MULTIPLE SCLEROSIS
     Route: 048
     Dates: start: 20140916

REACTIONS (19)
  - Condition aggravated [Recovering/Resolving]
  - Paraesthesia [Unknown]
  - Nasopharyngitis [Not Recovered/Not Resolved]
  - Balance disorder [Recovering/Resolving]
  - Malaise [Unknown]
  - Sinusitis [Unknown]
  - Vision blurred [Recovering/Resolving]
  - Alopecia [Unknown]
  - Drug ineffective [Unknown]
  - Multiple sclerosis relapse [Unknown]
  - Burning sensation [Unknown]
  - Diarrhoea [Recovered/Resolved]
  - Paraesthesia [Recovering/Resolving]
  - Drug dose omission [Unknown]
  - Fall [Recovering/Resolving]
  - Fatigue [Recovering/Resolving]
  - Diplopia [Not Recovered/Not Resolved]
  - Surgery [Unknown]
  - Memory impairment [Recovering/Resolving]

NARRATIVE: CASE EVENT DATE: 201409
